FAERS Safety Report 9444226 (Version 3)
Quarter: 2013Q4

REPORT INFORMATION
  Report Type: Spontaneous
  Country: US (occurrence: None)
  Receive Date: 20130725
  Receipt Date: 20131002
  Transmission Date: 20140711
  Serious: Yes (Other)
  Sender: FDA-Public Use
  Company Number: 2013037004

PATIENT
  Age: 69 Year
  Sex: Male

DRUGS (1)
  1. BERINERT [Suspect]
     Indication: PROPHYLAXIS
     Dosage: 1500 IU 1X/WEEK, 500 UNITS
     Dates: start: 20130712

REACTIONS (4)
  - Paraesthesia oral [None]
  - Burning sensation [None]
  - Throat tightness [None]
  - Abdominal distension [None]
